FAERS Safety Report 8995365 (Version 1)
Quarter: 2013Q1

REPORT INFORMATION
  Report Type: Spontaneous
  Country: US (occurrence: US)
  Receive Date: 20130103
  Receipt Date: 20130103
  Transmission Date: 20140127
  Serious: Yes (Other)
  Sender: FDA-Public Use
  Company Number: US-ABBOTT-12P-163-0928130-00

PATIENT
  Sex: Female
  Weight: 59.02 kg

DRUGS (5)
  1. SYNTHROID [Suspect]
     Indication: PRODUCT USED FOR UNKNOWN INDICATION
  2. TIROSINT [Suspect]
     Indication: HYPOTHYROIDISM
     Dates: start: 201201, end: 201202
  3. UNSPECIFIED INGREDIENT [Suspect]
     Indication: PRODUCT USED FOR UNKNOWN INDICATION
     Dates: start: 2010, end: 2012
  4. UNSPECIFIED INGREDIENT [Suspect]
     Dates: start: 2012
  5. POLYSORBATE [Suspect]
     Indication: PRODUCT USED FOR UNKNOWN INDICATION

REACTIONS (13)
  - Dyspnoea [Recovered/Resolved]
  - Urticaria [Recovered/Resolved]
  - Rash [Recovered/Resolved]
  - Hypersensitivity [Unknown]
  - Drug level fluctuating [Unknown]
  - Hair disorder [Not Recovered/Not Resolved]
  - Madarosis [Unknown]
  - Dry skin [Not Recovered/Not Resolved]
  - Anxiety [Not Recovered/Not Resolved]
  - Fluid retention [Unknown]
  - Face oedema [Unknown]
  - Weight increased [Unknown]
  - Pollakiuria [Unknown]
